FAERS Safety Report 4923051-7 (Version None)
Quarter: 2006Q1

REPORT INFORMATION
  Report Type: 
  Country: None (occurrence: None)
  Receive Date: 20060125
  Receipt Date: 20050629
  Transmission Date: 20060701
  Serious: Yes (Hospitalization, Other)
  Sender: FDA-Public Use
  Company Number: HQWYE885030JUN05

PATIENT
  Age: 87 Year
  Sex: Male
  Weight: 81.72 kg

DRUGS (5)
  1. CORDARONE [Suspect]
     Indication: ARRHYTHMIA
     Dosage: ORAL
     Route: 048
     Dates: start: 20050501, end: 20050620
  2. COUMADIN [Concomitant]
  3. ANTIHYPERTENSIVES (ANTIHYPERTENSIVES) [Concomitant]
  4. SYNTHROID [Concomitant]
  5. POTASSIUM (POTASSIUM) [Concomitant]

REACTIONS (1)
  - HEPATIC FAILURE [None]
